FAERS Safety Report 9815643 (Version 1)
Quarter: 2014Q1

REPORT INFORMATION
  Report Type: Spontaneous
  Country: CN (occurrence: None)
  Receive Date: 20140110
  Receipt Date: 20140110
  Transmission Date: 20141002
  Serious: Yes (Life-Threatening)
  Sender: FDA-Public Use
  Company Number: FK201400028

PATIENT
  Age: 37 Year
  Sex: Female

DRUGS (16)
  1. PROGESTERONE [Suspect]
     Indication: MENSTRUATION IRREGULAR
     Route: 048
  2. OMEPRAZOLE (OMEPRAZOLE) [Concomitant]
  3. SALMETEROL / FLUTICASONE (SERETIDE) [Concomitant]
  4. ASPIRIN EC (ACETYLSALICYLIC ACID) [Concomitant]
  5. CLOPIDOGREL (CLOPIDOGREL) [Concomitant]
  6. ROSUVASTATIN CALCIUM (ROSUVASTATIN CALCIUM) [Concomitant]
  7. LOW-MOLECULAR WEIGHT HEPARIN CALCIUM (HEPARIN CALCIUM) [Concomitant]
  8. UROKINASE (UROKINASE) [Concomitant]
  9. ATROPINE ((ATROPINE) [Concomitant]
  10. DOPAMINE (DOPAMINE) [Concomitant]
  11. NOREPINEPHRINE (NOREPINEPHRINE) [Concomitant]
  12. METARAMINOL (METARAMINOL) [Concomitant]
  13. DOBUTAMINE (DOBUTAMINE) [Concomitant]
  14. FUROSEMIDE (FUROSEMIDE) [Concomitant]
  15. SODIUM NITROPRUSSIDE (NITROPRUSSIDE SODIUM) [Concomitant]
  16. NITROGLYCCERIN (GLYCERL TRINITRATE) [Concomitant]

REACTIONS (15)
  - Kounis syndrome [None]
  - Cardiogenic shock [None]
  - Acute myocardial infarction [None]
  - Gastrooesophageal reflux disease [None]
  - Refusal of treatment by patient [None]
  - Refusal of treatment by relative [None]
  - Irritability [None]
  - Sinus bradycardia [None]
  - Atrioventricular block complete [None]
  - Loss of consciousness [None]
  - Ventricular fibrillation [None]
  - Acute left ventricular failure [None]
  - Pericardial effusion [None]
  - Tricuspid valve incompetence [None]
  - Mitral valve incompetence [None]
